FAERS Safety Report 20983805 (Version 3)
Quarter: 2022Q4

REPORT INFORMATION
  Report Type: Spontaneous
  Country: JP (occurrence: JP)
  Receive Date: 20220621
  Receipt Date: 20221125
  Transmission Date: 20230112
  Serious: Yes (Death, Other)
  Sender: FDA-Public Use
  Company Number: JP-JNJFOC-20220637214

PATIENT
  Age: 81 Year
  Sex: Female
  Weight: 43 kg

DRUGS (19)
  1. OPSUMIT [Suspect]
     Active Substance: MACITENTAN
     Indication: Pulmonary hypertension
     Route: 048
     Dates: start: 20220118, end: 20220407
  2. OPSUMIT [Suspect]
     Active Substance: MACITENTAN
     Route: 048
     Dates: start: 20220118, end: 20220411
  3. VALGANCICLOVIR [Concomitant]
     Active Substance: VALGANCICLOVIR
     Indication: Cytomegalovirus infection
     Route: 048
  4. ALPROSTADIL [Concomitant]
     Active Substance: ALPROSTADIL
     Indication: Skin ulcer
     Dosage: DOSE UNKNOWN
     Route: 065
  5. LIMAPROST [Concomitant]
     Active Substance: LIMAPROST
     Indication: Skin ulcer
     Route: 048
  6. FUROSEMIDE [Concomitant]
     Active Substance: FUROSEMIDE
     Route: 065
  7. PREDONINE [Concomitant]
     Active Substance: PREDNISOLONE
     Route: 065
  8. SAMSCA [Concomitant]
     Active Substance: TOLVAPTAN
     Route: 048
  9. AZELNIDIPINE\OLMESARTAN MEDOXOMIL [Concomitant]
     Active Substance: AZELNIDIPINE\OLMESARTAN MEDOXOMIL
     Dosage: DOSE UNKNOWN
     Route: 048
  10. CLOPIDOGREL [Concomitant]
     Active Substance: CLOPIDOGREL BISULFATE
     Route: 048
  11. NEXIUM [Concomitant]
     Active Substance: ESOMEPRAZOLE MAGNESIUM
     Route: 048
  12. CIFENLINE SUCCINATE [Concomitant]
     Active Substance: CIFENLINE SUCCINATE
     Route: 048
  13. SARPOGRELATE HYDROCHLORIDE [Concomitant]
     Active Substance: SARPOGRELATE HYDROCHLORIDE
     Route: 048
  14. HYDROXYCHLOROQUINE DIPHOSPHATE [Concomitant]
     Active Substance: HYDROXYCHLOROQUINE DIPHOSPHATE
     Dosage: DOSE UNKNOWN
     Route: 048
  15. SULFAMETHOXAZOLE\TRIMETHOPRIM [Concomitant]
     Active Substance: SULFAMETHOXAZOLE\TRIMETHOPRIM
     Dosage: DOSE UNKNOWN
     Route: 048
  16. TRAZODONE HYDROCHLORIDE [Concomitant]
     Active Substance: TRAZODONE HYDROCHLORIDE
     Route: 048
  17. HUMAN RED BLOOD CELL [Concomitant]
     Active Substance: HUMAN RED BLOOD CELL
     Route: 065
     Dates: start: 20210715, end: 20220411
  18. PLATELETS [Concomitant]
     Active Substance: HUMAN PLATELET, ALLOGENIC
     Route: 065
     Dates: start: 20210715, end: 20220411
  19. FRESH FROZEN PLASMA [Concomitant]
     Active Substance: HUMAN PLASMA
     Route: 065
     Dates: start: 20210715, end: 20220411

REACTIONS (4)
  - Post procedural infection [Fatal]
  - Sepsis [Fatal]
  - Septic shock [Fatal]
  - Leg amputation [Unknown]

NARRATIVE: CASE EVENT DATE: 20220401
